FAERS Safety Report 26103149 (Version 1)
Quarter: 2025Q4

REPORT INFORMATION
  Report Type: Spontaneous
  Country: US (occurrence: US)
  Receive Date: 20251129
  Receipt Date: 20251129
  Transmission Date: 20260117
  Serious: No
  Sender: IBSA INSTITUT BIOCHIMIQUE
  Company Number: US-IBSA PHARMA INC.-2025IBS000012

PATIENT

DRUGS (3)
  1. TIROSINT [Interacting]
     Active Substance: LEVOTHYROXINE SODIUM
     Indication: Thyroid hormone replacement therapy
     Dosage: 175 MICROGRAM, QD
     Dates: start: 2019, end: 20241218
  2. TIROSINT [Interacting]
     Active Substance: LEVOTHYROXINE SODIUM
     Dosage: 175 MICROGRAM, BID
     Dates: start: 20241219
  3. SEROQUEL [Interacting]
     Active Substance: QUETIAPINE FUMARATE
     Indication: Insomnia
     Dosage: UNK
     Route: 065

REACTIONS (7)
  - Acne [None]
  - Asthenia [None]
  - Migraine [None]
  - Rash [None]
  - Fatigue [None]
  - Drug interaction [Unknown]
  - Inappropriate schedule of product administration [Unknown]

NARRATIVE: CASE EVENT DATE: 20241207
